FAERS Safety Report 9638704 (Version 1)
Quarter: 2013Q4

REPORT INFORMATION
  Report Type: Spontaneous
  Country: NL (occurrence: NL)
  Receive Date: 20131022
  Receipt Date: 20131022
  Transmission Date: 20140711
  Serious: Yes (Death)
  Sender: FDA-Public Use
  Company Number: NL-AMGEN-NLDSP2013073398

PATIENT
  Age: 49 Year
  Sex: Female

DRUGS (10)
  1. XGEVA [Suspect]
     Indication: PROPHYLAXIS
     Dosage: UNK UNK, Q4WK
     Route: 065
     Dates: start: 20130123
  2. ZOPICLONE [Concomitant]
     Dosage: 7.5 MG, UNK
  3. OXAZEPAM [Concomitant]
     Dosage: 10 MG, UNK
  4. MACROGOL [Concomitant]
  5. TRAMADOL HCL [Concomitant]
     Dosage: 50 MG, UNK
  6. AZITHROMYCIN [Concomitant]
     Dosage: 500 MG, UNK
  7. ETHINYLESTRADIOL/LEVONORGESTREL A [Concomitant]
  8. FOLIUMZUUR [Concomitant]
     Dosage: 0.5 MG, UNK
  9. HYDROCOBAMINE [Concomitant]
     Dosage: 500 MUG, UNK
  10. CALCI CHEW D3 [Concomitant]
     Dosage: 500MG/400 IE

REACTIONS (1)
  - Death [Fatal]
